FAERS Safety Report 5365423-5 (Version None)
Quarter: 2007Q2

REPORT INFORMATION
  Report Type: 
  Country: None (occurrence: None)
  Receive Date: 20070621
  Receipt Date: 20070614
  Transmission Date: 20071010
  Serious: No
  Sender: FDA-Public Use
  Company Number: FR-ELI_LILLY_AND_COMPANY-FR200703001320

PATIENT
  Age: 37 Year
  Sex: Male

DRUGS (4)
  1. ZYPREXA [Suspect]
     Indication: BRIEF PSYCHOTIC DISORDER WITH MARKED STRESSORS
     Dosage: 5 MG, DAILY (1/D)
     Route: 048
     Dates: start: 20070411, end: 20070425
  2. ZYPREXA [Suspect]
     Dosage: 10 MG, DAILY (1/D)
     Route: 048
     Dates: start: 20070215, end: 20070410
  3. LEXOMIL [Concomitant]
     Indication: BRIEF PSYCHOTIC DISORDER WITH MARKED STRESSORS
     Dosage: 1 D/F, DAILY (1/D)
     Route: 048
     Dates: start: 20070215, end: 20070305
  4. IMOVANE [Concomitant]
     Dosage: 1 D/F, DAILY (1/D)
     Route: 048
     Dates: start: 20070215, end: 20070305

REACTIONS (2)
  - ALANINE AMINOTRANSFERASE INCREASED [None]
  - PLATELET COUNT DECREASED [None]
